FAERS Safety Report 4957433-4 (Version None)
Quarter: 2006Q1

REPORT INFORMATION
  Report Type: 
  Country: None (occurrence: None)
  Receive Date: 20060327
  Receipt Date: 20060316
  Transmission Date: 20060701
  Serious: Yes (Hospitalization)
  Sender: FDA-Public Use
  Company Number: UKP06000074

PATIENT
  Age: 88 Year
  Sex: Female

DRUGS (11)
  1. ACTONEL [Suspect]
     Dosage: 35 MG, 1/WEEK, ORAL
     Route: 048
     Dates: end: 20060224
  2. CO-BENELDOPA (LEVODOPA, BENSERAZIDE HYDROCHLORIDE) [Concomitant]
  3. FERROUS SULPHATE (FERROUS SULFATE) [Concomitant]
  4. FUROSEMIDE [Concomitant]
  5. LANSOPRAZOLE [Concomitant]
  6. GAVISCON ADVANCE (SODIUM ALGINATE, POTASSIUM BICARBONATE) [Concomitant]
  7. POTASSIUM CHLORIDE [Concomitant]
  8. ACETAMINOPHEN [Concomitant]
  9. CALCICHEW D3 (CALCIUM CARBONATE, COLECALCIFEROL) [Concomitant]
  10. DIHYDROCODEINE (DIHYDROCODEINE) [Concomitant]
  11. FORTISIP (PROTEIN, MINERALS NOS, FATS NOS, CARBOHYDRATES NOS, VITAMINS [Concomitant]

REACTIONS (3)
  - GASTROINTESTINAL HAEMORRHAGE [None]
  - OESOPHAGITIS [None]
  - PNEUMONIA [None]
